FAERS Safety Report 11289139 (Version 1)
Quarter: 2015Q3

REPORT INFORMATION
  Report Type: Spontaneous
  Country: TR (occurrence: TR)
  Receive Date: 20150721
  Receipt Date: 20150721
  Transmission Date: 20151125
  Serious: Yes (Hospitalization, Other)
  Sender: FDA-Public Use
  Company Number: PHHY2015TR083915

PATIENT
  Age: 65 Year
  Sex: Male

DRUGS (1)
  1. CLARITHROMYCIN. [Suspect]
     Active Substance: CLARITHROMYCIN
     Indication: OTITIS MEDIA
     Dosage: 500 MG, QD
     Route: 065

REACTIONS (4)
  - Myocardial infarction [Recovering/Resolving]
  - Kounis syndrome [Recovering/Resolving]
  - Chest pain [Recovered/Resolved]
  - Electrocardiogram ST segment elevation [Recovering/Resolving]
